FAERS Safety Report 9681106 (Version 1)
Quarter: 2013Q4

REPORT INFORMATION
  Report Type: Spontaneous
  Country: CH (occurrence: CH)
  Receive Date: 20131111
  Receipt Date: 20131111
  Transmission Date: 20140711
  Serious: Yes (Other)
  Sender: FDA-Public Use
  Company Number: CH-TEVA-442207ISR

PATIENT
  Age: 65 Year
  Sex: Female

DRUGS (10)
  1. CLARITHROCIN [Suspect]
     Route: 048
     Dates: start: 201306, end: 201306
  2. PNEUMOVAX 23 [Suspect]
     Dosage: 1 DOSAGE FORMS DAILY;
     Route: 065
     Dates: start: 20130604, end: 20130604
  3. AVALOX [Suspect]
     Route: 048
     Dates: start: 20130727, end: 20130805
  4. BISOLVON HUSTENSIRUP [Concomitant]
     Dosage: LONG TERM
     Route: 048
     Dates: start: 20130606
  5. NASOBOL [Concomitant]
     Dosage: LONG TERM
     Route: 045
     Dates: start: 20130606
  6. MUCOFLUID [Concomitant]
     Dosage: LONG TERM
     Route: 048
     Dates: start: 20130606
  7. RINOSEDIN NASENSPRAY 1 MG/ML [Concomitant]
     Dosage: LONG TERM
     Route: 045
     Dates: start: 20130606
  8. SPIRICORT [Concomitant]
     Dosage: 100 MILLIGRAM DAILY;
     Route: 048
     Dates: start: 20130719
  9. SERETIDE [Concomitant]
     Dosage: LONG TERM
     Route: 055
     Dates: start: 20130719
  10. VALSARTAN [Concomitant]
     Dosage: 80 MILLIGRAM DAILY;
     Route: 048

REACTIONS (4)
  - Asthma [Not Recovered/Not Resolved]
  - Cystitis [Recovered/Resolved]
  - Cough [Recovered/Resolved]
  - Increased upper airway secretion [Recovered/Resolved]
